FAERS Safety Report 19899780 (Version 1)
Quarter: 2021Q3

REPORT INFORMATION
  Report Type: Spontaneous
  Country: US (occurrence: US)
  Receive Date: 20210929
  Receipt Date: 20210929
  Transmission Date: 20211014
  Serious: No
  Sender: FDA-Public Use
  Company Number: None

PATIENT
  Age: 50 Year
  Sex: Male
  Weight: 138 kg

DRUGS (1)
  1. CASIRIVIMAB/IMDEVIMAB (EUA) (CASIRIVIMAB 1200MG/IMDEVIMAB 1200MG (EUA)) [Suspect]
     Active Substance: CASIRIVIMAB\IMDEVIMAB
     Indication: COVID-19
     Dosage: ?          OTHER DOSE:600/600 MG;?
     Route: 042
     Dates: start: 20210824, end: 20210824

REACTIONS (5)
  - Nausea [None]
  - Blood pressure systolic decreased [None]
  - Chills [None]
  - Hyperhidrosis [None]
  - Pyrexia [None]

NARRATIVE: CASE EVENT DATE: 20210824
